FAERS Safety Report 4960132-6 (Version None)
Quarter: 2006Q1

REPORT INFORMATION
  Report Type: 
  Country: None (occurrence: None)
  Receive Date: 20060328
  Receipt Date: 20060322
  Transmission Date: 20060701
  Serious: Yes (Death, Hospitalization, Other)
  Sender: FDA-Public Use
  Company Number: 163-21880-06020639

PATIENT
  Age: 78 Year
  Sex: Male

DRUGS (1)
  1. REVLIMID [Suspect]
     Indication: MYELODYSPLASTIC SYNDROME
     Dosage: 10 MG, QD, ORAL
     Route: 048
     Dates: start: 20060206, end: 20060224

REACTIONS (4)
  - ACUTE RESPIRATORY DISTRESS SYNDROME [None]
  - LUNG INFECTION [None]
  - PYREXIA [None]
  - THERAPY NON-RESPONDER [None]
